FAERS Safety Report 13215875 (Version 1)
Quarter: 2017Q1

REPORT INFORMATION
  Report Type: Spontaneous
  Country: US (occurrence: US)
  Receive Date: 20170210
  Receipt Date: 20170210
  Transmission Date: 20170428
  Serious: No
  Sender: FDA-Public Use
  Company Number: US-ROCHE-1818849

PATIENT
  Sex: Female

DRUGS (14)
  1. ZANTAC [Concomitant]
     Active Substance: RANITIDINE HYDROCHLORIDE
  2. LEVOCETIRIZINE [Concomitant]
     Active Substance: LEVOCETIRIZINE
  3. PREDNISONE. [Concomitant]
     Active Substance: PREDNISONE
  4. XOLAIR [Suspect]
     Active Substance: OMALIZUMAB
     Indication: IDIOPATHIC URTICARIA
     Dosage: MOST RECENT INJECTION RECEIVED INTRAMUSCULARLY INSTEAD OF SUBCUTANEOUSLY.
     Route: 058
     Dates: start: 201602
  5. QUERCETIN [Concomitant]
     Active Substance: QUERCETIN
  6. LORATADINE. [Concomitant]
     Active Substance: LORATADINE
  7. MAGNESIUM OXIDE. [Concomitant]
     Active Substance: MAGNESIUM OXIDE
  8. SERTRALINE [Concomitant]
     Active Substance: SERTRALINE HYDROCHLORIDE
  9. LYSINE [Concomitant]
     Active Substance: LYSINE
  10. VITAMIN B12 [Concomitant]
     Active Substance: CYANOCOBALAMIN
  11. VITAMIN C [Concomitant]
     Active Substance: ASCORBIC ACID
  12. ALPRAZOLAM. [Concomitant]
     Active Substance: ALPRAZOLAM
  13. ZYRTEC [Concomitant]
     Active Substance: CETIRIZINE HYDROCHLORIDE
  14. PANTOPRAZOLE [Concomitant]
     Active Substance: PANTOPRAZOLE SODIUM

REACTIONS (2)
  - Incorrect route of drug administration [Unknown]
  - No adverse event [Unknown]
